FAERS Safety Report 20229465 (Version 1)
Quarter: 2021Q4

REPORT INFORMATION
  Report Type: Spontaneous
  Country: US (occurrence: US)
  Receive Date: 20211225
  Receipt Date: 20211225
  Transmission Date: 20220303
  Serious: No
  Sender: FDA-Public Use
  Company Number: US-SA-SAC20211221001166

PATIENT
  Sex: Female

DRUGS (3)
  1. DUPIXENT [Suspect]
     Active Substance: DUPILUMAB
     Indication: Dermatitis atopic
     Dosage: 400 MG, TOTAL
     Route: 058
  2. DUPIXENT [Suspect]
     Active Substance: DUPILUMAB
     Dosage: 200MG
     Route: 058
  3. NEXPLANON [Concomitant]
     Active Substance: ETONOGESTREL
     Dosage: 68MG

REACTIONS (9)
  - Depression [Unknown]
  - Fatigue [Unknown]
  - Pruritus [Unknown]
  - Skin exfoliation [Unknown]
  - Decreased appetite [Unknown]
  - Product dose omission in error [Unknown]
  - Dry skin [Unknown]
  - Restlessness [Unknown]
  - Asthenia [Unknown]
